FAERS Safety Report 7320286-3 (Version None)
Quarter: 2011Q1

REPORT INFORMATION
  Report Type: 
  Country: None (occurrence: None)
  Receive Date: 20110228
  Receipt Date: 20110211
  Transmission Date: 20110831
  Serious: Yes (Other)
  Sender: FDA-Public Use
  Company Number: FR-PFIZER INC-2011028283

PATIENT
  Age: 51 Year
  Sex: Male

DRUGS (6)
  1. FOSAMPRENAVIR [Concomitant]
     Dosage: 700 MG, 2X/DAY
  2. EMTRICITABINE/TENOFOVIR DISOPROXIL FUMARATE [Concomitant]
     Dosage: 200MG/245MG 1X/DAY
  3. VARENICLINE TARTRATE [Suspect]
     Dosage: 1 MG/DAY FOR 1 WEEK
     Dates: start: 20090101, end: 20090101
  4. RITONAVIR [Concomitant]
     Dosage: 100 MG, 2X/DAY
  5. VARENICLINE TARTRATE [Suspect]
     Dosage: 2 MG/DAY FOR 10 WEEKS
  6. VARENICLINE TARTRATE [Suspect]
     Dosage: 1 MG, 1X/DAY
     Dates: start: 20090101, end: 20090301

REACTIONS (2)
  - GRAND MAL CONVULSION [None]
  - INSOMNIA [None]
